FAERS Safety Report 6908149-6 (Version None)
Quarter: 2010Q3

REPORT INFORMATION
  Report Type: 
  Country: None (occurrence: None)
  Receive Date: 20100805
  Receipt Date: 20100728
  Transmission Date: 20110219
  Serious: Yes (Hospitalization)
  Sender: FDA-Public Use
  Company Number: US-SANOFI-AVENTIS-2010SA045632

PATIENT
  Age: 85 Year
  Sex: Male

DRUGS (18)
  1. PLAVIX [Suspect]
     Route: 048
     Dates: start: 20080101
  2. INVESTIGATIONAL DRUG [Suspect]
     Dosage: MASKED (VGFT 0.5-2MG OR RANIBIZUMAB 0.5MG) EVERY FOUR WEEKS
     Route: 031
     Dates: start: 20090715
  3. ELAVIL [Concomitant]
     Route: 065
     Dates: start: 19990101
  4. PROSCAR [Concomitant]
     Indication: BENIGN PROSTATIC HYPERPLASIA
     Route: 065
     Dates: start: 20080101
  5. SIMVASTATIN [Concomitant]
     Route: 065
     Dates: start: 20080101
  6. NEXIUM [Concomitant]
     Route: 065
     Dates: start: 20080101
  7. MULTI-VITAMINS [Concomitant]
     Route: 065
  8. LOSARTAN [Concomitant]
     Indication: HYPERTENSION
     Route: 065
  9. DIGOXIN [Concomitant]
     Route: 065
  10. THALIDONE [Concomitant]
     Indication: HYPERTENSION
     Route: 048
     Dates: start: 20080101
  11. ACETAMINOPHEN WITH PROPOXYPHENE HCL TAB [Concomitant]
     Indication: PAIN
     Route: 048
     Dates: start: 20060101
  12. METOPROLOL [Concomitant]
     Indication: HYPERTENSION
     Route: 065
  13. VITAMIN B-12 [Concomitant]
     Route: 048
     Dates: start: 20070101
  14. CELEBREX [Concomitant]
     Indication: ARTHRITIS
     Route: 048
  15. NAMENDA [Concomitant]
     Route: 048
  16. NITROLINGUAL PUMPSPRAY [Concomitant]
     Indication: CHEST PAIN
     Route: 048
     Dates: start: 20100203
  17. VITAMIN B6 [Concomitant]
     Route: 048
     Dates: start: 20070101
  18. VITAMIN TAB [Concomitant]
     Route: 065
     Dates: start: 20090101

REACTIONS (4)
  - BALANCE DISORDER [None]
  - FALL [None]
  - OFF LABEL USE [None]
  - SUBDURAL HAEMATOMA [None]
